FAERS Safety Report 16778073 (Version 1)
Quarter: 2019Q3

REPORT INFORMATION
  Report Type: Spontaneous
  Country: CH (occurrence: CH)
  Receive Date: 20190905
  Receipt Date: 20190905
  Transmission Date: 20191005
  Serious: Yes (Other)
  Sender: FDA-Public Use
  Company Number: CH-BIOGEN-2019BI00781817

PATIENT
  Age: 58 Year
  Sex: Male

DRUGS (6)
  1. ELTROMBOPAG [Concomitant]
     Active Substance: ELTROMBOPAG
     Indication: IMMUNE THROMBOCYTOPENIC PURPURA
     Dosage: FOR 10 YEARS AND TO BE CONTINUED UNTIL FURTHER NOTICE
     Route: 048
     Dates: start: 2009
  2. QUILONORM (LITHIUM) [Concomitant]
     Indication: BIPOLAR DISORDER
     Dosage: QUILONORM (LITHIUM) 12.2MMOL, ORAL, 0-0-1.5, FOR 10 YEARS AND TO BE CONTINUED UNTIL FURTHER NOTICE
     Route: 048
     Dates: start: 2009
  3. TECFIDERA [Suspect]
     Active Substance: DIMETHYL FUMARATE
     Indication: MULTIPLE SCLEROSIS
     Dosage: 8 HOUR INTERVALS
     Route: 048
     Dates: start: 2015, end: 20190603
  4. SEQUASE [Concomitant]
     Active Substance: QUETIAPINE FUMARATE
     Indication: BIPOLAR DISORDER
     Dosage: FOR 10 YEARS AND TO BE CONTINUED UNTIL FURTHER NOTICE
     Route: 048
     Dates: start: 2009
  5. MIRTAZAPINE. [Concomitant]
     Active Substance: MIRTAZAPINE
     Indication: BIPOLAR DISORDER
     Dosage: FOR 10 YEARS AND TO BE CONTINUED UNTIL FURTHER NOTICE
     Route: 048
     Dates: start: 2009
  6. STILNOX [Concomitant]
     Active Substance: ZOLPIDEM TARTRATE
     Indication: INSOMNIA
     Dosage: STILNOX (ZOLPIDEM)10MG, ORAL, 0-0-0-1, FOR 10 YEARS, TO BE CONTINUED UNTIL FURTHER NOTICE, UNK IND
     Route: 048
     Dates: start: 2009

REACTIONS (2)
  - Leukopenia [Recovered/Resolved]
  - Neutropenia [Recovered/Resolved]

NARRATIVE: CASE EVENT DATE: 20190319
